FAERS Safety Report 23934089 (Version 1)
Quarter: 2024Q2

REPORT INFORMATION
  Report Type: Spontaneous
  Country: US (occurrence: US)
  Receive Date: 20240603
  Receipt Date: 20240603
  Transmission Date: 20240717
  Serious: Yes (Hospitalization)
  Sender: FDA-Public Use
  Company Number: US-JUBILANT CADISTA PHARMACEUTICALS-2024JUB00042

PATIENT
  Age: 27 Year
  Sex: Male

DRUGS (1)
  1. LOPERAMIDE HYDROCHLORIDE [Suspect]
     Active Substance: LOPERAMIDE HYDROCHLORIDE
     Dosage: 96 MG

REACTIONS (7)
  - Lactic acidosis [Unknown]
  - Acute kidney injury [Unknown]
  - Pancreatitis [Unknown]
  - Cardiac failure [Unknown]
  - Multiple organ dysfunction syndrome [Unknown]
  - Distributive shock [Unknown]
  - Overdose [Unknown]
